FAERS Safety Report 4587478-8 (Version None)
Quarter: 2005Q1

REPORT INFORMATION
  Report Type: 
  Country: None (occurrence: None)
  Receive Date: 20050215
  Receipt Date: 20050206
  Transmission Date: 20050727
  Serious: Yes (Other)
  Sender: FDA-Public Use
  Company Number: 2005026080

PATIENT
  Sex: Female
  Weight: 56.6996 kg

DRUGS (4)
  1. LIPITOR [Suspect]
     Indication: BLOOD CHOLESTEROL
     Dosage: 10 MG (10 MG, 1 IN 1 D), ORAL
     Route: 048
     Dates: start: 20010101
  2. ESTRADIOL [Suspect]
     Indication: ILL-DEFINED DISORDER
     Dosage: TRANSDERMAL
     Route: 062
  3. ALL OTHER THERAPEUTIC PRODUCTS (ALL OTHER THERAPEUTIC PRODUCTS) [Suspect]
     Indication: ILL-DEFINED DISORDER
  4. CYCLOSPORINE [Suspect]
     Indication: DRY EYE
     Dosage: OPHTHALMIC
     Route: 047

REACTIONS (2)
  - DRY EYE [None]
  - HYPERSENSITIVITY [None]
